FAERS Safety Report 25608015 (Version 3)
Quarter: 2025Q3

REPORT INFORMATION
  Report Type: Report from Study
  Country: US (occurrence: US)
  Receive Date: 20250725
  Receipt Date: 20250901
  Transmission Date: 20251021
  Serious: No
  Sender: MALLINCKRODT
  Company Number: US-MALLINCKRODT-MNK202504134

PATIENT
  Age: 34 Year
  Sex: Female
  Weight: 126 kg

DRUGS (43)
  1. CORTICOTROPIN [Suspect]
     Active Substance: CORTICOTROPIN
     Indication: Systemic lupus erythematosus
     Route: 030
     Dates: start: 20230901
  2. CORTICOTROPIN [Suspect]
     Active Substance: CORTICOTROPIN
     Indication: Rheumatoid arthritis
     Dates: start: 202506
  3. BENLYSTA [Concomitant]
     Active Substance: BELIMUMAB
  4. DICLOFENAC [Concomitant]
     Active Substance: DICLOFENAC
  5. FEBUXOSTAT [Concomitant]
     Active Substance: FEBUXOSTAT
  6. FETZIMA [Concomitant]
     Active Substance: LEVOMILNACIPRAN HYDROCHLORIDE
  7. CYCLOBENZAPRINE [Concomitant]
     Active Substance: CYCLOBENZAPRINE
  8. REYVOW [Concomitant]
     Active Substance: LASMIDITAN
  9. VENTOLIN HFA [Concomitant]
     Active Substance: ALBUTEROL SULFATE
  10. ZEPBOUND [Concomitant]
     Active Substance: TIRZEPATIDE
  11. LEVOCETIRIZINE [Concomitant]
     Active Substance: LEVOCETIRIZINE
  12. MYCOPHENOLIC ACID [Concomitant]
     Active Substance: MYCOPHENOLIC ACID
  13. FOLIC ACID [Concomitant]
     Active Substance: FOLIC ACID
  14. PROPRANOLOL [Concomitant]
     Active Substance: PROPRANOLOL HYDROCHLORIDE
  15. FAMOTIDINE [Concomitant]
     Active Substance: FAMOTIDINE
  16. LORAZEPAM [Concomitant]
     Active Substance: LORAZEPAM
  17. ESZOPICLONE [Concomitant]
     Active Substance: ESZOPICLONE
  18. PANTOPRAZOLE [Concomitant]
     Active Substance: PANTOPRAZOLE
  19. GABAPENTIN [Concomitant]
     Active Substance: GABAPENTIN
  20. QUETIAPINE [Concomitant]
     Active Substance: QUETIAPINE
  21. ARNUITY ELLIPTA [Concomitant]
     Active Substance: FLUTICASONE FUROATE
  22. ANORO ELLIPTA [Concomitant]
     Active Substance: UMECLIDINIUM BROMIDE\VILANTEROL TRIFENATATE
  23. HYDROXYZINE HYDROCHLORIDE [Concomitant]
     Active Substance: HYDROXYZINE HYDROCHLORIDE
  24. CLONIDINE [Concomitant]
     Active Substance: CLONIDINE
  25. ESTRADIOL [Concomitant]
     Active Substance: ESTRADIOL
  26. HYDROCODONE BITARTRATE AND ACETAMINOPHEN [Concomitant]
     Active Substance: ACETAMINOPHEN\HYDROCODONE BITARTRATE
  27. DIPHENHYDRAMINE [Concomitant]
     Active Substance: DIPHENHYDRAMINE
  28. BIOTIN [Concomitant]
     Active Substance: BIOTIN
  29. VITAMINS [Concomitant]
     Active Substance: VITAMINS
  30. CALCIUM\VITAMIN D [Concomitant]
     Active Substance: CALCIUM\VITAMIN D
  31. DOCUSATE [Concomitant]
     Active Substance: DOCUSATE
  32. CHOLECALCIFEROL [Concomitant]
     Active Substance: CHOLECALCIFEROL
  33. ALBUTEROL SULFATE [Concomitant]
     Active Substance: ALBUTEROL SULFATE
  34. ELIQUIS [Concomitant]
     Active Substance: APIXABAN
  35. CHLORZOXAZONE [Concomitant]
     Active Substance: CHLORZOXAZONE
  36. CHLORZOXAZONE [Concomitant]
     Active Substance: CHLORZOXAZONE
  37. NARCAN [Concomitant]
     Active Substance: NALOXONE HYDROCHLORIDE
  38. TAMOXIFEN [Concomitant]
     Active Substance: TAMOXIFEN
  39. PRAZOSIN [Concomitant]
     Active Substance: PRAZOSIN
  40. ONDANSETRON ODT [ONDANSETRON] [Concomitant]
  41. LEFLUNOMIDE [Concomitant]
     Active Substance: LEFLUNOMIDE
  42. EPINEPHRINE [Concomitant]
     Active Substance: EPINEPHRINE
  43. HYDROXYCHLOROQUINE [Concomitant]
     Active Substance: HYDROXYCHLOROQUINE

REACTIONS (3)
  - Pain in extremity [Recovering/Resolving]
  - Cellulitis [Not Recovered/Not Resolved]
  - Peripheral swelling [Recovering/Resolving]

NARRATIVE: CASE EVENT DATE: 20250619
